FAERS Safety Report 21850262 (Version 2)
Quarter: 2023Q1

REPORT INFORMATION
  Report Type: Spontaneous
  Country: JP (occurrence: JP)
  Receive Date: 20230111
  Receipt Date: 20230206
  Transmission Date: 20230417
  Serious: No
  Sender: FDA-Public Use
  Company Number: JP-PFIZER INC-PV202300004894

PATIENT
  Age: 62 Year
  Sex: Female

DRUGS (12)
  1. PAXLOVID [Suspect]
     Active Substance: NIRMATRELVIR\RITONAVIR
     Indication: COVID-19 treatment
     Dosage: [PF-07321332 150 MG]/[RITONAVIR 100 MG]; 2X/DAY
     Route: 048
     Dates: start: 20230110, end: 20230114
  2. FAMOTIDINE SAWAI [Concomitant]
     Dosage: 10 MG, 1X/DAY
     Route: 048
  3. VIBEGRON [Concomitant]
     Active Substance: VIBEGRON
     Dosage: 50 MG, 1X/DAY
     Route: 048
  4. PREDNISOLONE [Concomitant]
     Active Substance: PREDNISOLONE
     Dosage: 7.5 MG, 1X/DAY
     Route: 048
  5. LOSARTAN POTASSIUM [Concomitant]
     Active Substance: LOSARTAN POTASSIUM
     Dosage: 50 MG, 1X/DAY
     Route: 048
  6. OMEGA-3-ACID ETHYL ESTER [Concomitant]
     Active Substance: OMEGA-3-ACID ETHYL ESTERS
     Dosage: 2 G, 1X/DAY
     Route: 048
  7. BIO-THREE [Concomitant]
     Active Substance: HERBALS
     Dosage: 1 DF, 3X/DAY
     Route: 048
  8. ALENDRONATE [Concomitant]
     Active Substance: ALENDRONATE SODIUM
     Dosage: 35MG X ONCE/WEEK
     Route: 048
  9. CALONAL [Concomitant]
     Active Substance: ACETAMINOPHEN
     Dosage: 500 MG, 3X/DAY
     Route: 048
     Dates: start: 20230110, end: 20230116
  10. TRANSAMIN [Concomitant]
     Active Substance: TRANEXAMIC ACID
     Dosage: 250 MG, 3X/DAY
     Route: 048
     Dates: start: 20230110, end: 20230116
  11. CODEINE PHOSPHATE [Concomitant]
     Active Substance: CODEINE PHOSPHATE
     Dosage: 5 MG, 3X/DAY
     Route: 048
     Dates: start: 20230110, end: 20230116
  12. DEQUALINIUM CHLORIDE [Concomitant]
     Active Substance: DEQUALINIUM CHLORIDE
     Dosage: 1 DF, 4X/DAY
     Dates: start: 20230110, end: 20230116

REACTIONS (1)
  - Intercepted product dispensing error [Unknown]

NARRATIVE: CASE EVENT DATE: 20230110
